FAERS Safety Report 23816496 (Version 2)
Quarter: 2024Q2

REPORT INFORMATION
  Report Type: Spontaneous
  Country: FR (occurrence: FR)
  Receive Date: 20240503
  Receipt Date: 20240517
  Transmission Date: 20240715
  Serious: Yes (Hospitalization, Other)
  Sender: FDA-Public Use
  Company Number: FR-IPSEN Group, Research and Development-2024-06997

PATIENT
  Age: 74 Year
  Sex: Female

DRUGS (12)
  1. DYSPORT [Suspect]
     Active Substance: ABOBOTULINUMTOXINA
     Indication: Hemiplegia
     Route: 030
     Dates: start: 20230904, end: 20230904
  2. DYSPORT [Suspect]
     Active Substance: ABOBOTULINUMTOXINA
     Route: 030
     Dates: start: 20231204, end: 20231204
  3. DYSPORT [Suspect]
     Active Substance: ABOBOTULINUMTOXINA
     Dosage: DISPATCHED LIKE THIS: 250UNITS IN MUSCLE ?TIBIALIS POSTERIOR?, 150UNITS IN MUSCLE ?FLEXOR DIGITORUM
     Route: 030
     Dates: start: 20240311, end: 20240311
  4. KARDEGIC [Concomitant]
     Active Substance: ASPIRIN DL-LYSINE
     Dosage: 160 (DL-LYSIN-ACETYLSALICYLATE)
  5. LOVENOX [Concomitant]
     Active Substance: ENOXAPARIN SODIUM
     Dosage: 40 (ENOXAPARIN SODIUM)
  6. AMLODIPINE [Concomitant]
     Active Substance: AMLODIPINE BESYLATE
  7. ATORVASTATIN [Concomitant]
     Active Substance: ATORVASTATIN
  8. CLOPIDOGREL [Concomitant]
     Active Substance: CLOPIDOGREL BISULFATE
  9. PANTOPRAZOLE [Concomitant]
     Active Substance: PANTOPRAZOLE
  10. PAROXETINE [Concomitant]
     Active Substance: PAROXETINE
  11. RAMIPRIL [Concomitant]
     Active Substance: RAMIPRIL
  12. ASPIRIN [Concomitant]
     Active Substance: ASPIRIN

REACTIONS (1)
  - Neuromuscular toxicity [Recovering/Resolving]
